FAERS Safety Report 8804515 (Version 4)
Quarter: 2012Q4

REPORT INFORMATION
  Report Type: 
  Country: CZ (occurrence: CZ)
  Receive Date: 20120924
  Receipt Date: 20121114
  Transmission Date: 20130627
  Serious: Yes (Other)
  Sender: FDA-Public Use
  Company Number: CZ-AMGEN-CZESP2012059196

PATIENT
  Age: 36 Year
  Sex: Female
  Weight: 90 kg

DRUGS (2)
  1. NPLATE [Suspect]
     Indication: THROMBOCYTOPENIA
     Dosage: 1 mug/kg, qwk
     Route: 058
     Dates: start: 201207, end: 20120905
  2. CORTICOSTEROIDS [Concomitant]
     Indication: IDIOPATHIC THROMBOCYTOPENIC PURPURA
     Dosage: 20 mg, UNK
     Route: 048
     Dates: start: 20120912

REACTIONS (2)
  - Menorrhagia [Unknown]
  - Drug ineffective [Not Recovered/Not Resolved]
